FAERS Safety Report 13239982 (Version 2)
Quarter: 2017Q1

REPORT INFORMATION
  Report Type: Spontaneous
  Country: US (occurrence: US)
  Receive Date: 20170216
  Receipt Date: 20170224
  Transmission Date: 20170428
  Serious: Yes (Other)
  Sender: FDA-Public Use
  Company Number: US-PFIZER INC-2017068688

PATIENT
  Age: 58 Year
  Sex: Male
  Weight: 113 kg

DRUGS (3)
  1. SERTRALINE HCL [Suspect]
     Active Substance: SERTRALINE HYDROCHLORIDE
     Indication: DEPRESSION
     Dosage: 200 MG, 2X/DAY
     Route: 048
     Dates: start: 2016
  2. ELAVIL [Suspect]
     Active Substance: AMITRIPTYLINE HYDROCHLORIDE
     Indication: DISCOMFORT
     Dosage: UNK
  3. ELAVIL [Suspect]
     Active Substance: AMITRIPTYLINE HYDROCHLORIDE
     Indication: PAIN

REACTIONS (6)
  - Nervousness [Unknown]
  - Drug ineffective [Unknown]
  - Seizure [Unknown]
  - Tremor [Unknown]
  - Screaming [Unknown]
  - Panic disorder [Unknown]

NARRATIVE: CASE EVENT DATE: 2016
